FAERS Safety Report 4629663-2 (Version None)
Quarter: 2005Q2

REPORT INFORMATION
  Report Type: 
  Country: None (occurrence: None)
  Receive Date: 20050406
  Receipt Date: 20050317
  Transmission Date: 20051028
  Serious: Yes (Life-Threatening, Hospitalization)
  Sender: FDA-Public Use
  Company Number: EWC050343068

PATIENT
  Age: 74 Year
  Sex: Female
  Weight: 77 kg

DRUGS (5)
  1. GEMZAR [Suspect]
     Indication: NON-SMALL CELL LUNG CANCER
     Dosage: 1000 MG/M2/3, OTHER
     Route: 050
     Dates: start: 20041228
  2. XANAX (ALPRAZOLAM DUM) [Concomitant]
  3. ISORDIL [Concomitant]
  4. DOXABEN (DOXAZOSIN MESILATE) [Concomitant]
  5. LASIX [Concomitant]

REACTIONS (3)
  - HYPERSENSITIVITY [None]
  - INFUSION RELATED REACTION [None]
  - RESPIRATORY DISTRESS [None]
